FAERS Safety Report 5989307-4 (Version None)
Quarter: 2008Q4

REPORT INFORMATION
  Report Type: 
  Country: None (occurrence: None)
  Receive Date: 20081205
  Receipt Date: 20081120
  Transmission Date: 20090506
  Serious: Yes (Hospitalization)
  Sender: FDA-Public Use
  Company Number: 8039920

PATIENT
  Age: 60 Year
  Sex: Female

DRUGS (2)
  1. KEPPRA [Suspect]
     Dosage: 1500 MG 2/D
  2. TOPAMAX [Concomitant]

REACTIONS (3)
  - BODY TEMPERATURE DECREASED [None]
  - EPILEPSY [None]
  - SPEECH DISORDER [None]
